FAERS Safety Report 7020454-4 (Version None)
Quarter: 2010Q3

REPORT INFORMATION
  Report Type: 
  Country: None (occurrence: None)
  Receive Date: 20100927
  Receipt Date: 20100909
  Transmission Date: 20110219
  Serious: Yes (Hospitalization)
  Sender: FDA-Public Use
  Company Number: 1000015316

PATIENT
  Age: 77 Year
  Sex: Female
  Weight: 98 kg

DRUGS (11)
  1. MEMANTINE HCL [Suspect]
     Indication: DEMENTIA ALZHEIMER'S TYPE
     Dosage: 20 MG (20 MG, 1 IN 1 D), ORAL; 10 MG (10 MG, 1 IN 1 D), ORAL
     Route: 048
     Dates: start: 20100422, end: 20100610
  2. MEMANTINE HCL [Suspect]
     Indication: DEMENTIA ALZHEIMER'S TYPE
     Dosage: 20 MG (20 MG, 1 IN 1 D), ORAL; 10 MG (10 MG, 1 IN 1 D), ORAL
     Route: 048
     Dates: start: 20100611, end: 20100717
  3. RISPERIDON [Concomitant]
  4. CIATYL-Z [Concomitant]
  5. L-THYROX [Concomitant]
  6. METOBETA [Concomitant]
  7. OMEP [Concomitant]
  8. LORZAAR PLUS (HYZAAR) [Concomitant]
  9. GLIBEN [Concomitant]
  10. METFORMIN [Concomitant]
  11. LYRICA [Concomitant]

REACTIONS (7)
  - AGGRESSION [None]
  - AGITATION [None]
  - DISORIENTATION [None]
  - GLYCOSYLATED HAEMOGLOBIN INCREASED [None]
  - PSYCHIATRIC DECOMPENSATION [None]
  - SUICIDAL BEHAVIOUR [None]
  - UNEVALUABLE EVENT [None]
